FAERS Safety Report 9262832 (Version 2)
Quarter: 2013Q2

REPORT INFORMATION
  Report Type: Spontaneous
  Country: JP (occurrence: JP)
  Receive Date: 20130430
  Receipt Date: 20130607
  Transmission Date: 20140414
  Serious: Yes (Death, Hospitalization, Other)
  Sender: FDA-Public Use
  Company Number: PHHY2013JP042360

PATIENT
  Age: 97 Year
  Sex: Female
  Weight: 58 kg

DRUGS (1)
  1. NEORAL [Suspect]
     Indication: INTERSTITIAL LUNG DISEASE
     Route: 048

REACTIONS (11)
  - Marasmus [Fatal]
  - Condition aggravated [Fatal]
  - Melaena [Unknown]
  - Malaise [Unknown]
  - Chronic respiratory failure [Unknown]
  - Lung disorder [Unknown]
  - Cardiac failure [Unknown]
  - Pneumocystis jirovecii pneumonia [Unknown]
  - Infection [Unknown]
  - Influenza [Unknown]
  - Oral administration complication [Unknown]
